FAERS Safety Report 9458776 (Version 1)
Quarter: 2013Q3

REPORT INFORMATION
  Report Type: Spontaneous
  Country: FR (occurrence: FR)
  Receive Date: 20130814
  Receipt Date: 20130814
  Transmission Date: 20140515
  Serious: Yes (Other)
  Sender: FDA-Public Use
  Company Number: FR-BRISTOL-MYERS SQUIBB COMPANY-19168962

PATIENT
  Age: 86 Year
  Sex: Male

DRUGS (3)
  1. HYDREA CAPS [Suspect]
     Indication: ESSENTIAL THROMBOCYTHAEMIA
     Dosage: 1DF:1 CAPSULE
     Route: 048
     Dates: start: 200910, end: 20130711
  2. ASPEGIC [Concomitant]
  3. ALLOPURINOL [Concomitant]

REACTIONS (2)
  - Squamous cell carcinoma [Unknown]
  - Off label use [Unknown]
